FAERS Safety Report 9542459 (Version 1)
Quarter: 2013Q3

REPORT INFORMATION
  Report Type: Spontaneous
  Country: US (occurrence: None)
  Receive Date: 20130918
  Receipt Date: 20130918
  Transmission Date: 20140515
  Serious: Yes (Other)
  Sender: FDA-Public Use
  Company Number: DSU-2013-04498

PATIENT
  Age: 61 Year
  Sex: Male
  Weight: 102.06 kg

DRUGS (10)
  1. BENICAR [Suspect]
     Indication: HYPERTENSION
     Route: 048
     Dates: start: 2010
  2. LISINOPRIL [Suspect]
     Indication: HYPERTENSION
     Route: 048
     Dates: start: 2013
  3. NIFEDIPINE XL [Concomitant]
  4. ASPIRIN (ACETYLSALICYLIC ACID) (ACETYLSALICYLIC ACID) [Concomitant]
  5. ALLOPURINOL (ALLOPURINOL) (ALLOPURINOL) [Concomitant]
  6. GLYBURIDE (BLIBENCLAMIDE) (BLIBENCLAMIDE) [Concomitant]
  7. METFORMIN (METFORMIN) (METFORMIN) [Concomitant]
  8. NAPROXEN (NAPROXEN) (NAPROXEN) [Concomitant]
  9. OMEPRAZOLE (OMEPRAZOLE) (OMEPRAZOLE) [Concomitant]
  10. TERAZOSIN (TERAZOSIN)(TERAZOSIN) [Concomitant]

REACTIONS (4)
  - Blood pressure inadequately controlled [None]
  - Prescribed overdose [None]
  - Blood creatinine increased [None]
  - Renal disorder [None]
